FAERS Safety Report 5745014-4 (Version None)
Quarter: 2008Q2

REPORT INFORMATION
  Report Type: 
  Country: None (occurrence: None)
  Receive Date: 20080521
  Receipt Date: 20080512
  Transmission Date: 20081010
  Serious: Yes (Other)
  Sender: FDA-Public Use
  Company Number: PHEH2008US01375

PATIENT
  Age: 55 Year
  Sex: Male

DRUGS (6)
  1. ZOMETA [Suspect]
     Indication: MULTIPLE MYELOMA
     Dosage: 4 MG, UNK
     Dates: start: 20050501, end: 20080101
  2. DECADRON [Concomitant]
     Dates: start: 20060601, end: 20071201
  3. THALIDOMIDE [Concomitant]
     Dates: start: 20060801, end: 20061101
  4. VELCADE [Concomitant]
     Dosage: 2MG, BIW
     Dates: start: 20061101, end: 20071201
  5. REVLIMID [Concomitant]
     Dosage: 25 MG, QD
     Dates: start: 20070417
  6. MELPHALAN [Concomitant]
     Dosage: 14 MG, QD
     Dates: start: 20071001, end: 20071201

REACTIONS (4)
  - OSTEONECROSIS [None]
  - SEQUESTRECTOMY [None]
  - TOOTH ABSCESS [None]
  - TOOTH EXTRACTION [None]
